FAERS Safety Report 24717269 (Version 1)
Quarter: 2024Q4

REPORT INFORMATION
  Report Type: Spontaneous
  Country: US (occurrence: None)
  Receive Date: 20241209
  Receipt Date: 20241209
  Transmission Date: 20250115
  Serious: Yes (Hospitalization)
  Sender: Public
  Company Number: None

PATIENT
  Age: 33 Year
  Sex: Female
  Weight: 76.5 kg

DRUGS (4)
  1. SEMAGLUTIDE [Suspect]
     Active Substance: SEMAGLUTIDE
     Indication: Irritable bowel syndrome
     Dates: start: 20241025, end: 20241101
  2. HYDROXYZINE [Concomitant]
     Active Substance: HYDROXYZINE HYDROCHLORIDE
  3. PROPRANOLOL [Concomitant]
     Active Substance: PROPRANOLOL HYDROCHLORIDE
  4. VITAMINS [Concomitant]
     Active Substance: VITAMINS

REACTIONS (10)
  - Tachycardia [None]
  - Panic reaction [None]
  - Loss of consciousness [None]
  - Impaired driving ability [None]
  - Impaired work ability [None]
  - Chest discomfort [None]
  - Nervous system disorder [None]
  - Ventricular extrasystoles [None]
  - Anxiety [None]
  - Syncope [None]

NARRATIVE: CASE EVENT DATE: 20241103
